FAERS Safety Report 8781782 (Version 2)
Quarter: 2013Q4

REPORT INFORMATION
  Report Type: Report from Study
  Country: US (occurrence: US)
  Receive Date: 20120913
  Receipt Date: 20131101
  Transmission Date: 20140711
  Serious: No
  Sender: FDA-Public Use
  Company Number: US-009507513-1208USA009589

PATIENT
  Sex: Male

DRUGS (3)
  1. REBETOL [Suspect]
     Indication: HEPATITIS C
     Dosage: 800 MG, QD
     Dates: start: 20111011, end: 20120308
  2. VICTRELIS [Suspect]
     Dosage: UNK
     Dates: start: 20111115, end: 20120308
  3. PEGINTERFERON ALFA-2A [Suspect]
     Indication: HEPATITIS C
     Dosage: 180 MICROGRAM, QW. PRE-FILLED SYRINGE
     Dates: start: 20111011, end: 20120308

REACTIONS (1)
  - Anaemia [Unknown]
